FAERS Safety Report 9888091 (Version 1)
Quarter: 2014Q1

REPORT INFORMATION
  Report Type: Spontaneous
  Country: NO (occurrence: NO)
  Receive Date: 20140211
  Receipt Date: 20140211
  Transmission Date: 20141002
  Serious: Yes (Disabling)
  Sender: FDA-Public Use
  Company Number: NO-WATSON-2014-02112

PATIENT
  Age: 51 Year
  Sex: Female

DRUGS (3)
  1. GENTAMICIN [Suspect]
     Indication: ENDOCARDITIS
     Dosage: 3 MG/KG, UNKNOWN
     Route: 042
     Dates: start: 20130524, end: 20130626
  2. PENTREXYL /00000501/ [Suspect]
     Indication: ENDOCARDITIS
     Dosage: 2 G, UNKNOWN; 4 TIMES
     Route: 065
     Dates: start: 20130603, end: 20130724
  3. RIFAMPICIN [Concomitant]
     Indication: ENDOCARDITIS
     Dosage: 300 MG, BID
     Route: 065
     Dates: start: 20130626, end: 20130705

REACTIONS (3)
  - Dizziness [Not Recovered/Not Resolved]
  - Balance disorder [Not Recovered/Not Resolved]
  - Vestibular disorder [Not Recovered/Not Resolved]
